FAERS Safety Report 19101052 (Version 1)
Quarter: 2021Q2

REPORT INFORMATION
  Report Type: Spontaneous
  Country: US (occurrence: US)
  Receive Date: 20210407
  Receipt Date: 20210407
  Transmission Date: 20210717
  Serious: No
  Sender: FDA-Public Use
  Company Number: US-SA-2021SA110903

PATIENT
  Age: 27 Year
  Sex: Female

DRUGS (8)
  1. PREDNISONE. [Concomitant]
     Active Substance: PREDNISONE
  2. VIENVA TM [Concomitant]
     Active Substance: ETHINYL ESTRADIOL\LEVONORGESTREL
  3. ACYCLOVIR [ACICLOVIR] [Concomitant]
     Active Substance: ACYCLOVIR
  4. DUPIXENT [Suspect]
     Active Substance: DUPILUMAB
     Indication: DERMATITIS ATOPIC
     Dosage: 300 MG, QOW
     Route: 058
     Dates: start: 20210301
  5. ONDANSETRON [ONDANSETRON HYDROCHLORIDE] [Concomitant]
     Active Substance: ONDANSETRON HYDROCHLORIDE
  6. CLINDAMYCIN. [Concomitant]
     Active Substance: CLINDAMYCIN
     Dosage: CLINDAMYCIN 1% LOTION AND GEL
  7. OMEPRAZOLE. [Concomitant]
     Active Substance: OMEPRAZOLE
  8. METRONIDAZOLE. [Concomitant]
     Active Substance: METRONIDAZOLE

REACTIONS (2)
  - Confusional state [Unknown]
  - Inappropriate schedule of product administration [Unknown]

NARRATIVE: CASE EVENT DATE: 202103
